FAERS Safety Report 9186571 (Version 2)
Quarter: 2013Q2

REPORT INFORMATION
  Report Type: Spontaneous
  Country: US (occurrence: US)
  Receive Date: 20130325
  Receipt Date: 20130401
  Transmission Date: 20140414
  Serious: Yes (Other)
  Sender: FDA-Public Use
  Company Number: US-JNJFOC-20130308722

PATIENT
  Age: 53 Year
  Sex: Female
  Weight: 117.48 kg

DRUGS (29)
  1. STELARA [Suspect]
     Indication: PSORIASIS
     Route: 058
     Dates: start: 201209
  2. ESCITALOPRAM OXALATE [Concomitant]
     Indication: DEPRESSION
     Route: 048
     Dates: start: 1998
  3. FUROSEMIDE [Concomitant]
     Indication: FLUID RETENTION
     Route: 048
     Dates: start: 2003
  4. POTASSIUM CHLORIDE [Concomitant]
     Indication: ELECTROLYTE DEPLETION
     Route: 048
     Dates: start: 2003
  5. PROPRANOLOL [Concomitant]
     Indication: BLOOD PRESSURE
     Route: 048
     Dates: start: 2003
  6. LOSARTAN POTASSIUM W/HYDROCHLOROTHIAZIDE [Concomitant]
     Indication: BLOOD PRESSURE
     Dosage: 100-25 MG
     Route: 048
     Dates: start: 2003
  7. LORAZEPAM [Concomitant]
     Indication: ANXIETY
     Dosage: AS NEEDED
     Route: 048
     Dates: start: 2003
  8. LEVOTHYROXINE SODIUM [Concomitant]
     Indication: THYROID DISORDER
     Route: 048
     Dates: start: 2003
  9. SIMVASTATIN [Concomitant]
     Indication: BLOOD CHOLESTEROL
     Dosage: 1 AT BEDTIME
     Route: 048
     Dates: start: 2003
  10. FOLIC ACID [Concomitant]
     Indication: ARTHRITIS
     Route: 048
     Dates: start: 2010
  11. SPIRONOLACTONE [Concomitant]
     Indication: FLUID RETENTION
     Route: 048
     Dates: start: 2010
  12. METOLAZONE [Concomitant]
     Indication: FLUID RETENTION
     Route: 048
     Dates: start: 2010
  13. PROMETHAZINE HCL [Concomitant]
     Indication: NAUSEA
     Dosage: AS NEEDED
     Route: 048
     Dates: start: 2010
  14. OMEPRAZOLE [Concomitant]
     Indication: GASTRIC DISORDER
     Route: 048
     Dates: start: 2010
  15. VITAMIN D [Concomitant]
     Indication: VITAMIN D DEFICIENCY
     Dosage: 100000 U
     Route: 048
     Dates: start: 2010
  16. FERROUS IRON SUPPLEMENT [Concomitant]
     Indication: MINERAL SUPPLEMENTATION
     Route: 048
     Dates: start: 2003
  17. IRON [Concomitant]
     Indication: MINERAL SUPPLEMENTATION
     Route: 048
     Dates: start: 2003
  18. ACETAMINOPHEN CODEINE [Concomitant]
     Indication: PAIN
     Dosage: 30 TABLETS AS NEEDED
     Route: 048
     Dates: end: 2010
  19. LANTUS INSULIN [Concomitant]
     Indication: DIABETES MELLITUS
     Dosage: 48 U AT BEDTIME
     Route: 058
     Dates: start: 201204
  20. NOVOLOG [Concomitant]
     Indication: DIABETES MELLITUS
     Dosage: 16 U BEFORE EACH MEAL; NOVOLOG
     Route: 058
     Dates: start: 201204
  21. FLONASE [Concomitant]
     Indication: RHINORRHOEA
     Route: 045
  22. COLACE [Concomitant]
     Indication: CONSTIPATION
     Route: 048
     Dates: start: 2010
  23. ZYRTEC [Concomitant]
     Indication: HYPERSENSITIVITY
     Route: 048
     Dates: start: 2010
  24. CLOBETASOL PROPIONATE [Concomitant]
     Dosage: 0.05 % AM AND PM
     Route: 061
     Dates: start: 201209
  25. TACLONEX [Concomitant]
     Dosage: BED TIME TO LEG
     Route: 061
     Dates: start: 201210
  26. ESTRACE [Concomitant]
     Indication: HORMONE REPLACEMENT THERAPY
     Dosage: BED TIME TO LEG
     Route: 048
     Dates: start: 1999
  27. MORPHINE SULFATE [Concomitant]
     Indication: PAIN
     Route: 048
     Dates: start: 201210
  28. SINGULAIR [Concomitant]
     Indication: HYPERSENSITIVITY
     Route: 048
     Dates: start: 2012
  29. URSOLIC ACID [Concomitant]
     Indication: GOUT
     Route: 048
     Dates: start: 201203

REACTIONS (6)
  - Cholelithiasis [Not Recovered/Not Resolved]
  - Blood glucose increased [Unknown]
  - Abdominal pain upper [Not Recovered/Not Resolved]
  - Nausea [Not Recovered/Not Resolved]
  - Retching [Not Recovered/Not Resolved]
  - Pain [Not Recovered/Not Resolved]
